FAERS Safety Report 11196647 (Version 2)
Quarter: 2015Q4

REPORT INFORMATION
  Report Type: Spontaneous
  Country: US (occurrence: US)
  Receive Date: 20150617
  Receipt Date: 20151227
  Transmission Date: 20160304
  Serious: No
  Sender: FDA-Public Use
  Company Number: US-009507513-1506USA008226

PATIENT
  Age: 23 Year
  Sex: Male
  Weight: 99.77 kg

DRUGS (3)
  1. RAGWITEK [Suspect]
     Active Substance: AMBROSIA ARTEMISIIFOLIA POLLEN
     Indication: SEASONAL ALLERGY
     Dosage: 15 MG, QD
     Route: 048
     Dates: start: 20150603, end: 2015
  2. RAGWITEK [Suspect]
     Active Substance: AMBROSIA ARTEMISIIFOLIA POLLEN
     Indication: URTICARIA
     Dosage: 15 MG, QD
     Route: 060
     Dates: start: 20150520, end: 20150602
  3. RAGWITEK [Suspect]
     Active Substance: AMBROSIA ARTEMISIIFOLIA POLLEN
     Dosage: 15 MG, QD
     Route: 060
     Dates: start: 2015, end: 20151120

REACTIONS (4)
  - Pharyngeal oedema [Recovered/Resolved]
  - Pharyngeal oedema [Recovered/Resolved]
  - Wrong technique in product usage process [Unknown]
  - Throat irritation [Recovered/Resolved]

NARRATIVE: CASE EVENT DATE: 201506
